FAERS Safety Report 7532311-5 (Version None)
Quarter: 2011Q2

REPORT INFORMATION
  Report Type: 
  Country: None (occurrence: None)
  Receive Date: 20110608
  Receipt Date: 20110602
  Transmission Date: 20111010
  Serious: Yes (Hospitalization)
  Sender: FDA-Public Use
  Company Number: US-MERCK-1103USA02681

PATIENT
  Age: 52 Year
  Sex: Female
  Weight: 58 kg

DRUGS (3)
  1. FOSAMAX [Suspect]
     Indication: OSTEOPENIA
     Route: 048
     Dates: start: 20020101, end: 20060101
  2. BONIVA [Suspect]
     Indication: OSTEOPENIA
     Route: 048
     Dates: start: 20060101, end: 20100401
  3. YASMIN [Concomitant]
     Indication: MENORRHAGIA
     Route: 065
     Dates: start: 20020301, end: 20060101

REACTIONS (14)
  - ORAL HERPES [None]
  - PERIARTHRITIS [None]
  - LOW TURNOVER OSTEOPATHY [None]
  - FOOT FRACTURE [None]
  - OSTEOPOROSIS [None]
  - TENDONITIS [None]
  - VITAMIN D DEFICIENCY [None]
  - HYPERTENSION [None]
  - MIXED HYPERLIPIDAEMIA [None]
  - HOT FLUSH [None]
  - IMPAIRED HEALING [None]
  - RHINITIS ALLERGIC [None]
  - FEMUR FRACTURE [None]
  - FUNGAL INFECTION [None]
